FAERS Safety Report 23276337 (Version 1)
Quarter: 2023Q4

REPORT INFORMATION
  Report Type: Spontaneous
  Country: FR (occurrence: None)
  Receive Date: 20231208
  Receipt Date: 20231208
  Transmission Date: 20240109
  Serious: Yes (Life-Threatening, Hospitalization, Other)
  Sender: FDA-Public Use
  Company Number: 2023A272153

PATIENT
  Age: 77 Year
  Sex: Male

DRUGS (17)
  1. CRESTOR [Suspect]
     Active Substance: ROSUVASTATIN CALCIUM
     Indication: Product used for unknown indication
     Dosage: 20 MILLIGRAM, 1/DAY
     Route: 048
  2. CEFEPIME HYDROCHLORIDE [Suspect]
     Active Substance: CEFEPIME HYDROCHLORIDE
     Indication: Product used for unknown indication
     Dosage: 2 GRAM, 1/DAY
     Route: 042
     Dates: start: 20100731, end: 20100806
  3. RIMIFON [Suspect]
     Active Substance: ISONIAZID
     Indication: Product used for unknown indication
     Dosage: 500 MILLIGRAM, 1/DAY
     Route: 048
     Dates: start: 20100604, end: 20100806
  4. AMIKACIN SULFATE [Suspect]
     Active Substance: AMIKACIN SULFATE
     Indication: Product used for unknown indication
     Dosage: UNK
     Route: 042
     Dates: start: 20100731, end: 20100805
  5. KARDEGIC [Suspect]
     Active Substance: ASPIRIN DL-LYSINE
     Indication: Product used for unknown indication
     Dosage: 75 MILLIGRAM75.0MG UNKNOWN
  6. ALLOPURINOL [Suspect]
     Active Substance: ALLOPURINOL
     Indication: Product used for unknown indication
     Dosage: 100 MILLIGRAM, 1/DAY
  7. RIFAMPIN [Suspect]
     Active Substance: RIFAMPIN
     Indication: Product used for unknown indication
     Dosage: 900 MILLIGRAM, 1/DAY
     Route: 048
     Dates: start: 20100604, end: 20100806
  8. CILASTATIN SODIUM\IMIPENEM [Suspect]
     Active Substance: CILASTATIN SODIUM\IMIPENEM
     Indication: Product used for unknown indication
     Dates: start: 20100708, end: 20100725
  9. MYAMBUTOL [Suspect]
     Active Substance: ETHAMBUTOL HYDROCHLORIDE
     Indication: Product used for unknown indication
     Dosage: 1600 MILLIGRAM, 1/DAY
     Route: 048
     Dates: start: 20100604, end: 20100806
  10. PYRAZINAMIDE [Suspect]
     Active Substance: PYRAZINAMIDE
     Indication: Product used for unknown indication
     Dosage: 2500 MILLIGRAM, 1/DAY
     Route: 048
     Dates: start: 20100604, end: 20100806
  11. ACEBUTOLOL [Suspect]
     Active Substance: ACEBUTOLOL
     Indication: Product used for unknown indication
     Dosage: 400 MILLIGRAM, 1/DAY
  12. RAMIPRIL [Suspect]
     Active Substance: RAMIPRIL
     Indication: Product used for unknown indication
     Dosage: 10 MILLIGRAM, 1/DAY
  13. MYAMBUTOL [Suspect]
     Active Substance: ETHAMBUTOL HYDROCHLORIDE
     Indication: Product used for unknown indication
     Dosage: 1600 MILLIGRAM, 1/DAY
     Route: 048
     Dates: start: 20100604, end: 20100806
  14. RIMIFON [Suspect]
     Active Substance: ISONIAZID
     Route: 048
     Dates: start: 20100604, end: 20100806
  15. RIFAMPIN [Suspect]
     Active Substance: RIFAMPIN
     Route: 048
     Dates: start: 20100604, end: 20100806
  16. GLICLAZIDE [Suspect]
     Active Substance: GLICLAZIDE
     Indication: Product used for unknown indication
     Dosage: 320 MILLIGRAM, 1/DAY
  17. SOLU-MEDROL [Concomitant]
     Active Substance: METHYLPREDNISOLONE SODIUM SUCCINATE
     Indication: Erythema
     Dates: start: 20100725

REACTIONS (5)
  - Generalised tonic-clonic seizure [Recovered/Resolved]
  - Pleural effusion [Unknown]
  - Renal failure [Unknown]
  - Altered state of consciousness [Unknown]
  - Dermatitis exfoliative generalised [Recovering/Resolving]

NARRATIVE: CASE EVENT DATE: 20100602
